FAERS Safety Report 17061547 (Version 1)
Quarter: 2019Q4

REPORT INFORMATION
  Report Type: Spontaneous
  Country: FR (occurrence: FR)
  Receive Date: 20191121
  Receipt Date: 20191121
  Transmission Date: 20200122
  Serious: Yes (Other)
  Sender: FDA-Public Use
  Company Number: FR-MYLANLABS-2019M1111915

PATIENT
  Age: 79 Year
  Sex: Female

DRUGS (1)
  1. TRAMADOL/PARACETAMOL MYLAN PHARMA 37,5 MG/325 MG, COMPRIM? PELLICUL? [Suspect]
     Active Substance: ACETAMINOPHEN\TRAMADOL
     Indication: PAIN
     Dosage: MAXIMUM
     Route: 048
     Dates: start: 20190816, end: 20190819

REACTIONS (1)
  - Intestinal obstruction [Recovered/Resolved]

NARRATIVE: CASE EVENT DATE: 20190816
